FAERS Safety Report 20489167 (Version 2)
Quarter: 2022Q1

REPORT INFORMATION
  Report Type: Spontaneous
  Country: US (occurrence: None)
  Receive Date: 20220218
  Receipt Date: 20220307
  Transmission Date: 20220423
  Serious: Yes (Other)
  Sender: FDA-Public Use
  Company Number: 2022A074090

PATIENT
  Age: 71 Year
  Sex: Male
  Weight: 104.3 kg

DRUGS (5)
  1. OLAPARIB [Suspect]
     Active Substance: OLAPARIB
     Indication: Prostate cancer
     Route: 048
     Dates: start: 20220125, end: 20220210
  2. OLAPARIB [Suspect]
     Active Substance: OLAPARIB
     Indication: Prostate cancer metastatic
     Route: 048
     Dates: start: 20220125, end: 20220210
  3. LUPRON [Concomitant]
     Active Substance: LEUPROLIDE ACETATE
  4. XGEVA [Concomitant]
     Active Substance: DENOSUMAB
  5. MEGESTROL ACETATE [Concomitant]
     Active Substance: MEGESTROL ACETATE

REACTIONS (9)
  - Haematochezia [Not Recovered/Not Resolved]
  - Mean cell haemoglobin increased [Unknown]
  - Red cell distribution width increased [Unknown]
  - Platelet count decreased [Unknown]
  - Haemoglobin decreased [Unknown]
  - Red blood cell count decreased [Unknown]
  - Haematocrit decreased [Unknown]
  - Mean cell volume increased [Unknown]
  - Product use in unapproved indication [Unknown]

NARRATIVE: CASE EVENT DATE: 20220101
